FAERS Safety Report 24576570 (Version 1)
Quarter: 2024Q4

REPORT INFORMATION
  Report Type: Spontaneous
  Country: US (occurrence: US)
  Receive Date: 20241104
  Receipt Date: 20241104
  Transmission Date: 20250115
  Serious: Yes (Other)
  Sender: PFIZER
  Company Number: US-PFIZER INC-202400290904

PATIENT
  Age: 65 Year
  Sex: Female
  Weight: 50.35 kg

DRUGS (2)
  1. DEPO-ESTRADIOL [Suspect]
     Active Substance: ESTRADIOL CYPIONATE
     Indication: Hysterotomy
     Dosage: 1 ML EVERY 4 WEEKS
     Route: 030
     Dates: start: 1979
  2. REMICADE [Concomitant]
     Active Substance: INFLIXIMAB
     Indication: Crohn^s disease
     Dosage: EVERY 8 WEEKS
     Route: 042

REACTIONS (2)
  - Breast cancer [Unknown]
  - Contraindicated product administered [Unknown]

NARRATIVE: CASE EVENT DATE: 20100101
